FAERS Safety Report 4667891-0 (Version None)
Quarter: 2005Q2

REPORT INFORMATION
  Report Type: 
  Country: None (occurrence: None)
  Receive Date: 20050520
  Receipt Date: 20050510
  Transmission Date: 20051028
  Serious: Yes (Other)
  Sender: FDA-Public Use
  Company Number: US-ROCHE-404495

PATIENT

DRUGS (2)
  1. ACCUTANE [Suspect]
     Dates: start: 19950929, end: 19960318
  2. ORAL CONTRACEPTIVE PILL [Concomitant]

REACTIONS (2)
  - COMPLICATIONS OF MATERNAL EXPOSURE TO THERAPEUTIC DRUGS [None]
  - PREMATURE LABOUR [None]
